FAERS Safety Report 10020360 (Version 1)
Quarter: 2014Q1

REPORT INFORMATION
  Report Type: Spontaneous
  Country: US (occurrence: US)
  Receive Date: 20140319
  Receipt Date: 20140319
  Transmission Date: 20141002
  Serious: No
  Sender: FDA-Public Use
  Company Number: US-BIOGENIDEC-2014BI022295

PATIENT
  Age: 63 Year
  Sex: Female

DRUGS (6)
  1. TECFIDERA [Suspect]
     Indication: MULTIPLE SCLEROSIS
     Route: 048
     Dates: start: 20140304
  2. CARDIZEM LA [Concomitant]
  3. METOPROLOL [Concomitant]
  4. ZOCOR [Concomitant]
  5. ASPIRIN [Concomitant]
  6. ALEVE [Concomitant]

REACTIONS (2)
  - Paraesthesia [Not Recovered/Not Resolved]
  - Flushing [Not Recovered/Not Resolved]
